FAERS Safety Report 18993189 (Version 5)
Quarter: 2021Q2

REPORT INFORMATION
  Report Type: Report from Study
  Country: US (occurrence: US)
  Receive Date: 20210310
  Receipt Date: 20210611
  Transmission Date: 20210717
  Serious: No
  Sender: FDA-Public Use
  Company Number: US-BIOVITRUM-2021US1154

PATIENT
  Sex: Male

DRUGS (7)
  1. AMYTRIPTYLINE [Concomitant]
     Active Substance: AMITRIPTYLINE
  2. PREVACID [Concomitant]
     Active Substance: LANSOPRAZOLE
  3. GABAPENTIN. [Concomitant]
     Active Substance: GABAPENTIN
  4. MITIGARE [Concomitant]
     Active Substance: COLCHICINE
  5. KINERET [Suspect]
     Active Substance: ANAKINRA
     Indication: PRODUCT USED FOR UNKNOWN INDICATION
     Route: 058
     Dates: start: 20210131
  6. NAPROXEN. [Concomitant]
     Active Substance: NAPROXEN
  7. MELATONIN [Concomitant]
     Active Substance: MELATONIN

REACTIONS (9)
  - Insomnia [Unknown]
  - Injection site erythema [Unknown]
  - Fatigue [Unknown]
  - Illness [Recovered/Resolved]
  - Pain [Unknown]
  - Injection site pain [Unknown]
  - Injection site rash [Unknown]
  - Condition aggravated [Unknown]
  - Product dose omission issue [Unknown]
